FAERS Safety Report 6831216-2 (Version None)
Quarter: 2010Q3

REPORT INFORMATION
  Report Type: 
  Country: None (occurrence: None)
  Receive Date: 20100709
  Receipt Date: 20100709
  Transmission Date: 20110219
  Serious: Yes (Life-Threatening, Hospitalization, Disabling, Other)
  Sender: FDA-Public Use
  Company Number: None

PATIENT
  Age: 22 Year
  Sex: Female
  Weight: 54.5 kg

DRUGS (1)
  1. HYDROXYCHLOROQUINE SULFATE [Suspect]
     Indication: SYSTEMIC LUPUS ERYTHEMATOSUS
     Dosage: 200 MG  1 TABLET TWICE/DAY 047
     Dates: start: 20100616, end: 20100618

REACTIONS (3)
  - ACUTE HEPATIC FAILURE [None]
  - HEPATITIS ACUTE [None]
  - LIVER INJURY [None]
